FAERS Safety Report 9846969 (Version 3)
Quarter: 2014Q1

REPORT INFORMATION
  Report Type: Spontaneous
  Country: DE (occurrence: DE)
  Receive Date: 20140127
  Receipt Date: 20140313
  Transmission Date: 20141002
  Serious: Yes (Other)
  Sender: FDA-Public Use
  Company Number: DE-INCYTE CORPORATION-2014IN000118

PATIENT
  Sex: Female
  Weight: 64 kg

DRUGS (3)
  1. JAKAVI [Suspect]
     Indication: MYELOFIBROSIS
     Dosage: 5 MG, BID
     Route: 048
     Dates: start: 20130212, end: 201308
  2. JAKAVI [Suspect]
     Dosage: 5 MG, BID
     Route: 048
     Dates: start: 201308
  3. ACETYLSALICYLIC ACID [Concomitant]
     Dosage: UNK
     Dates: end: 20140109

REACTIONS (2)
  - Haemorrhage subcutaneous [Recovered/Resolved]
  - Pain [Recovered/Resolved]
